FAERS Safety Report 4565350-7 (Version None)
Quarter: 2005Q1

REPORT INFORMATION
  Report Type: 
  Country: None (occurrence: None)
  Receive Date: 20050126
  Receipt Date: 20050113
  Transmission Date: 20050727
  Serious: Yes (Hospitalization, Other)
  Sender: FDA-Public Use
  Company Number: 2005-00157

PATIENT
  Age: 37 Year
  Sex: Female

DRUGS (3)
  1. TRAMADOL HCL [Suspect]
     Indication: HEADACHE
     Dosage: 10X200 MG TABS (2 G), ORAL
     Route: 048
  2. TRAMADOL HCL [Suspect]
     Indication: PAIN
     Dosage: 10X200 MG TABS (2 G), ORAL
     Route: 048
  3. NITRAZEPAM [Concomitant]

REACTIONS (4)
  - DRUG TOXICITY [None]
  - PULMONARY HYPERTENSION [None]
  - RIGHT VENTRICULAR FAILURE [None]
  - SEROTONIN SYNDROME [None]
